FAERS Safety Report 15499767 (Version 2)
Quarter: 2018Q4

REPORT INFORMATION
  Report Type: Spontaneous
  Country: IN (occurrence: IN)
  Receive Date: 20181015
  Receipt Date: 20181213
  Transmission Date: 20190205
  Serious: Yes (Other)
  Sender: FDA-Public Use
  Company Number: IN-PFIZER INC-2018278155

PATIENT
  Age: 55 Year
  Sex: Male

DRUGS (1)
  1. CHAMPIX [Suspect]
     Active Substance: VARENICLINE TARTRATE
     Indication: SMOKING CESSATION THERAPY
     Dosage: 2 MG, DAILY (1 MG 2 TABLETS DAILY)
     Route: 048
     Dates: start: 20180617

REACTIONS (2)
  - Gastric disorder [Unknown]
  - Typhoid fever [Recovered/Resolved]

NARRATIVE: CASE EVENT DATE: 20180910
